FAERS Safety Report 14604478 (Version 1)
Quarter: 2018Q1

REPORT INFORMATION
  Report Type: Spontaneous
  Country: US (occurrence: US)
  Receive Date: 20180306
  Receipt Date: 20180306
  Transmission Date: 20180509
  Serious: No
  Sender: FDA-Public Use
  Company Number: None

PATIENT
  Age: 79 Year
  Sex: Female

DRUGS (15)
  1. IMATINIB MESYLATE 400 MG [Suspect]
     Active Substance: IMATINIB MESYLATE
     Indication: CHRONIC MYELOID LEUKAEMIA
     Route: 048
     Dates: start: 201603
  2. METOPROLOL SUCCINATE. [Concomitant]
     Active Substance: METOPROLOL SUCCINATE
  3. HYDROCODONE-ACETAMINOPHEN [Concomitant]
     Active Substance: ACETAMINOPHEN\HYDROCODONE
  4. LISINOPRIL. [Concomitant]
     Active Substance: LISINOPRIL
  5. PREVALITE [Concomitant]
     Active Substance: CHOLESTYRAMINE
  6. BACLOFEN. [Concomitant]
     Active Substance: BACLOFEN
  7. L-ARGININE [Concomitant]
     Active Substance: ARGININE
  8. MAGNESIUM [Concomitant]
     Active Substance: MAGNESIUM
  9. TRAMADOL. [Concomitant]
     Active Substance: TRAMADOL
  10. CALCIUM [Concomitant]
     Active Substance: CALCIUM
  11. XARELTO [Concomitant]
     Active Substance: RIVAROXABAN
  12. FLECAINIDE ACETATE. [Concomitant]
     Active Substance: FLECAINIDE ACETATE
  13. VITAMIN D [Concomitant]
     Active Substance: CHOLECALCIFEROL
  14. L-CARNITINE [Concomitant]
     Active Substance: LEVOCARNITINE
  15. VITAMIN B COMPLEX [Concomitant]
     Active Substance: CYANOCOBALAMIN\DEXPANTHENOL\NIACINAMIDE\PYRIDOXINE HYDROCHLORIDE\RIBOFLAVIN 5^-PHOSPHATE SODIUM\THIAMINE HYDROCHLORIDE\VITAMIN B COMPLEX

REACTIONS (1)
  - Breast cancer [None]

NARRATIVE: CASE EVENT DATE: 20180302
